FAERS Safety Report 4964271-5 (Version None)
Quarter: 2006Q1

REPORT INFORMATION
  Report Type: 
  Country: None (occurrence: None)
  Receive Date: 20060331
  Receipt Date: 20060314
  Transmission Date: 20060701
  Serious: Yes (Other)
  Sender: FDA-Public Use
  Company Number: US200603001315

PATIENT
  Age: 86 Year
  Sex: Female

DRUGS (9)
  1. FORTEO [Suspect]
     Indication: OSTEOPOROSIS
     Dates: start: 20050101
  2. FORTEO [Concomitant]
  3. ANTIHYPERTENSIVE AGENT (ANTIHYPERTENSIVE AGENT UNKNOWN FORMULATION) [Concomitant]
  4. POTASSIUM CHLORIDE [Concomitant]
  5. FOSAMAX /ITA/(ALENDRONATE SODIUM) [Concomitant]
  6. ALREX (LOTEPREDNOL ETABONATE) [Concomitant]
  7. NOVASEN (ACETYLSALICYLIC ACID) [Concomitant]
  8. DIAZIDE (GLICLAZIDE) [Concomitant]
  9. PREMARIN [Concomitant]

REACTIONS (3)
  - INTRAOCULAR PRESSURE INCREASED [None]
  - MACULAR DEGENERATION [None]
  - PHARMACEUTICAL PRODUCT COMPLAINT [None]
